FAERS Safety Report 7734929-3 (Version None)
Quarter: 2011Q3

REPORT INFORMATION
  Report Type: 
  Country: None (occurrence: None)
  Receive Date: 20110907
  Receipt Date: 20110905
  Transmission Date: 20111222
  Serious: Yes (Hospitalization)
  Sender: FDA-Public Use
  Company Number: PHHO2011DE05190

PATIENT
  Sex: Female
  Weight: 92 kg

DRUGS (3)
  1. FTY [Suspect]
     Indication: MULTIPLE SCLEROSIS
     Dosage: 0.5 MG, QD
     Route: 048
     Dates: start: 20110315
  2. EXFORGE [Concomitant]
     Indication: HYPERTENSION
  3. TOPIRAMATE [Concomitant]
     Indication: MIGRAINE

REACTIONS (2)
  - CONCOMITANT DISEASE PROGRESSION [None]
  - DEEP VEIN THROMBOSIS [None]
